FAERS Safety Report 5044534-8 (Version None)
Quarter: 2006Q2

REPORT INFORMATION
  Report Type: 
  Country: None (occurrence: None)
  Receive Date: 20060629
  Receipt Date: 20060616
  Transmission Date: 20061013
  Serious: Yes (Hospitalization)
  Sender: FDA-Public Use
  Company Number: 2006055997

PATIENT
  Age: 53 Year
  Sex: Female

DRUGS (4)
  1. SU-011,248 (SUNITINIB MALATE) [Suspect]
     Indication: GASTROINTESTINAL STROMAL TUMOUR
     Dosage: 50 MG (50 MG, 1 IN 1 D), ORAL
     Route: 048
     Dates: start: 20060420
  2. LEVOTHYROXINE SODIUM [Concomitant]
  3. CLEXANE (HEPARN-FRACTION, SODIUM SALT) [Concomitant]
  4. ATENOLOL [Concomitant]

REACTIONS (6)
  - CONFUSIONAL STATE [None]
  - FEELING ABNORMAL [None]
  - INCORRECT DOSE ADMINISTERED [None]
  - INFECTION [None]
  - INTESTINAL OBSTRUCTION [None]
  - PYREXIA [None]
